FAERS Safety Report 10398266 (Version 2)
Quarter: 2014Q4

REPORT INFORMATION
  Report Type: Spontaneous
  Country: US (occurrence: US)
  Receive Date: 20140821
  Receipt Date: 20141113
  Transmission Date: 20150528
  Serious: Yes (Other)
  Sender: FDA-Public Use
  Company Number: US-AMGEN-USASP2014062782

PATIENT
  Age: 82 Year
  Sex: Female

DRUGS (3)
  1. NPLATE [Suspect]
     Active Substance: ROMIPLOSTIM
     Indication: IMMUNE THROMBOCYTOPENIC PURPURA
     Dosage: 60 MUG, UNK
     Route: 065
     Dates: start: 20100306
  2. PROMACTA [Concomitant]
     Active Substance: ELTROMBOPAG OLAMINE
  3. VITAMINS                           /00067501/ [Concomitant]

REACTIONS (7)
  - Cataract [Unknown]
  - Feeling abnormal [Unknown]
  - Diarrhoea [Unknown]
  - Blood glucose abnormal [Unknown]
  - Platelet count decreased [Unknown]
  - Glucose tolerance impaired [Unknown]
  - Tinnitus [Unknown]

NARRATIVE: CASE EVENT DATE: 2013
